FAERS Safety Report 11970372 (Version 1)
Quarter: 2016Q1

REPORT INFORMATION
  Report Type: Spontaneous
  Country: US (occurrence: None)
  Receive Date: 20160126
  Receipt Date: 20160126
  Transmission Date: 20160526
  Serious: Yes (Hospitalization)
  Sender: FDA-Public Use
  Company Number: None

PATIENT
  Age: 48 Year
  Sex: Female
  Weight: 91.17 kg

DRUGS (1)
  1. SMZ/TMP 800-160 MG TABLET MUTUAL PHARMACEUTICAL [Suspect]
     Active Substance: SULFAMETHOXAZOLE\TRIMETHOPRIM
     Indication: URINARY TRACT INFECTION
     Dosage: 800-160 MG
     Route: 048
     Dates: start: 20160116

REACTIONS (3)
  - Pain [None]
  - Macule [None]
  - Blister [None]

NARRATIVE: CASE EVENT DATE: 20160117
